FAERS Safety Report 8629159 (Version 5)
Quarter: 2015Q3

REPORT INFORMATION
  Report Type: Report from Study
  Country: CA (occurrence: CA)
  Receive Date: 20120621
  Receipt Date: 20150717
  Transmission Date: 20151125
  Serious: Yes (Death, Hospitalization, Other)
  Sender: FDA-Public Use
  Company Number: CA-ROCHE-1079347

PATIENT
  Age: 53 Year
  Sex: Female
  Weight: 90.7 kg

DRUGS (20)
  1. CLONAZEPAM. [Concomitant]
     Active Substance: CLONAZEPAM
  2. LAMOTRIGINE. [Concomitant]
     Active Substance: LAMOTRIGINE
  3. VOLTAREN [Concomitant]
     Active Substance: DICLOFENAC SODIUM
  4. DIPHENHYDRAMINE HCL [Concomitant]
     Active Substance: DIPHENHYDRAMINE HYDROCHLORIDE
     Route: 048
     Dates: start: 20100909
  5. CYMBALTA [Concomitant]
     Active Substance: DULOXETINE HYDROCHLORIDE
  6. RITUXAN [Suspect]
     Active Substance: RITUXIMAB
     Indication: RHEUMATOID ARTHRITIS
     Dosage: DOSE ON DAY 1, DAY 15, LAST INFUSION WAS ON 10/OCT/2013 PRIOR TO LUNG INFECTION?LAST DOSE OF RITUXIM
     Route: 042
     Dates: start: 20100909
  7. CIPRALEX [Concomitant]
     Active Substance: ESCITALOPRAM OXALATE
  8. LYRICA [Concomitant]
     Active Substance: PREGABALIN
  9. LAMOTRIGINE. [Concomitant]
     Active Substance: LAMOTRIGINE
  10. QUETIAPINE [Concomitant]
     Active Substance: QUETIAPINE
  11. MORPHINE [Concomitant]
     Active Substance: MORPHINE
  12. RANITIDINE [Concomitant]
     Active Substance: RANITIDINE\RANITIDINE HYDROCHLORIDE
  13. ACETAMINOPHEN. [Concomitant]
     Active Substance: ACETAMINOPHEN
     Route: 048
     Dates: start: 20100909
  14. IMURAN [Concomitant]
     Active Substance: AZATHIOPRINE
  15. SYNTHROID [Concomitant]
     Active Substance: LEVOTHYROXINE SODIUM
  16. WELLBUTRIN [Concomitant]
     Active Substance: BUPROPION HYDROCHLORIDE
  17. STATEX (CANADA) [Concomitant]
  18. TYLENOL [Concomitant]
     Active Substance: ACETAMINOPHEN
  19. MELATONIN [Concomitant]
     Active Substance: MELATONIN
  20. METHYLPREDNISOLONE. [Concomitant]
     Active Substance: METHYLPREDNISOLONE
     Route: 042
     Dates: start: 20100909

REACTIONS (7)
  - Malaise [Unknown]
  - Fibromyalgia [Not Recovered/Not Resolved]
  - Rheumatoid arthritis [Not Recovered/Not Resolved]
  - Stress [Unknown]
  - Lung infection [Not Recovered/Not Resolved]
  - Death [Fatal]
  - Pain [Unknown]

NARRATIVE: CASE EVENT DATE: 201206
